FAERS Safety Report 5020863-9 (Version None)
Quarter: 2006Q2

REPORT INFORMATION
  Report Type: 
  Country: None (occurrence: None)
  Receive Date: 20060606
  Receipt Date: 20060606
  Transmission Date: 20061013
  Serious: Yes (Other)
  Sender: FDA-Public Use
  Company Number: None

PATIENT
  Age: 60 Year
  Sex: Female
  Weight: 104.3273 kg

DRUGS (1)
  1. NIACIN [Suspect]
     Dosage: 1 CAPSULE 1 A DAY ORAL
     Route: 048
     Dates: start: 20060403, end: 20060408

REACTIONS (12)
  - ANOREXIA [None]
  - APTYALISM [None]
  - DIFFICULTY IN WALKING [None]
  - DIZZINESS [None]
  - DYSSTASIA [None]
  - FEELING COLD [None]
  - FEELING HOT [None]
  - IMPAIRED WORK ABILITY [None]
  - LACRIMATION DECREASED [None]
  - MUSCLE CONTRACTIONS INVOLUNTARY [None]
  - NAUSEA [None]
  - TREMOR [None]
